FAERS Safety Report 4317282-7 (Version None)
Quarter: 2004Q1

REPORT INFORMATION
  Report Type: 
  Country: None (occurrence: None)
  Receive Date: 20040304
  Receipt Date: 20040226
  Transmission Date: 20041129
  Serious: Yes (Life-Threatening)
  Sender: FDA-Public Use
  Company Number: FR9184626SEP2002

PATIENT
  Age: 29 Year
  Sex: Male

DRUGS (3)
  1. REFACTO [Suspect]
     Indication: FACTOR VIII DEFICIENCY
     Dosage: 2,000 TO 3,000 IU EVERY 2 OR 3 DAYS INTRAVENOUS; SEE IMAGE
     Route: 042
     Dates: start: 19990101, end: 20020201
  2. REFACTO [Suspect]
     Indication: FACTOR VIII DEFICIENCY
     Dosage: 2,000 TO 3,000 IU EVERY 2 OR 3 DAYS INTRAVENOUS; SEE IMAGE
     Route: 042
     Dates: start: 20020201, end: 20020201
  3. REFACTO [Suspect]
     Indication: FACTOR VIII DEFICIENCY
     Dosage: 2,000 TO 3,000 IU EVERY 2 OR 3 DAYS INTRAVENOUS; SEE IMAGE
     Route: 042
     Dates: start: 20020201

REACTIONS (6)
  - COAGULATION FACTOR VIII LEVEL DECREASED [None]
  - DRUG INEFFECTIVE [None]
  - FIBRINOLYSIS [None]
  - HAEMARTHROSIS [None]
  - HAEMOGLOBIN DECREASED [None]
  - THROMBOSIS [None]
